FAERS Safety Report 9631510 (Version 1)
Quarter: 2013Q4

REPORT INFORMATION
  Report Type: Spontaneous
  Country: US (occurrence: US)
  Receive Date: 20131018
  Receipt Date: 20131018
  Transmission Date: 20140711
  Serious: No
  Sender: FDA-Public Use
  Company Number: US-PFIZER INC-2013297022

PATIENT
  Age: 49 Year
  Sex: Female
  Weight: 37.64 kg

DRUGS (3)
  1. LYRICA [Suspect]
     Indication: BONE DISORDER
     Dosage: 25 MG, 3X/DAY
     Dates: start: 201309, end: 2013
  2. LYRICA [Suspect]
     Dosage: 50 MG, 3X/DAY
     Dates: start: 2013, end: 2013
  3. PREMARIN [Concomitant]
     Dosage: UNK

REACTIONS (7)
  - Off label use [Unknown]
  - Pain [Unknown]
  - Crying [Unknown]
  - Insomnia [Unknown]
  - Swelling [Unknown]
  - Limb injury [Unknown]
  - Fall [Unknown]
